FAERS Safety Report 6933072-0 (Version None)
Quarter: 2010Q3

REPORT INFORMATION
  Report Type: 
  Country: None (occurrence: None)
  Receive Date: 20100819
  Receipt Date: 20100812
  Transmission Date: 20110219
  Serious: Yes (Hospitalization)
  Sender: FDA-Public Use
  Company Number: VE-ABBOTT-10P-178-0659500-00

PATIENT
  Sex: Female

DRUGS (2)
  1. VALCOTE TABLETS [Suspect]
     Indication: DEPRESSION
     Dates: start: 20091001
  2. ZYPREXA [Concomitant]
     Indication: BIPOLAR I DISORDER
     Dates: end: 20100501

REACTIONS (2)
  - CUSHING'S SYNDROME [None]
  - THROMBOTIC THROMBOCYTOPENIC PURPURA [None]
